FAERS Safety Report 10883214 (Version 1)
Quarter: 2015Q1

REPORT INFORMATION
  Report Type: Spontaneous
  Country: BE (occurrence: BE)
  Receive Date: 20150303
  Receipt Date: 20150303
  Transmission Date: 20150721
  Serious: Yes (Other)
  Sender: FDA-Public Use
  Company Number: PHHY2015BE022369

PATIENT
  Age: 32 Year
  Sex: Female

DRUGS (2)
  1. FUROSEMIDE. [Suspect]
     Active Substance: FUROSEMIDE
     Indication: PRODUCT USED FOR UNKNOWN INDICATION
     Dosage: 80 MG, UNK
     Route: 048
  2. MINIRIN [Concomitant]
     Active Substance: DESMOPRESSIN ACETATE
     Indication: PRODUCT USED FOR UNKNOWN INDICATION
     Dosage: 0.3 UG/KG, UNK
     Route: 042

REACTIONS (6)
  - Weight decreased [Unknown]
  - Blood pressure decreased [Unknown]
  - Urine osmolarity decreased [Recovered/Resolved]
  - Polyuria [Recovered/Resolved]
  - Paradoxical drug reaction [Unknown]
  - Headache [Unknown]
